FAERS Safety Report 8892802 (Version 1)
Quarter: 2012Q4

REPORT INFORMATION
  Report Type: 
  Country: US (occurrence: US)
  Receive Date: 20121107
  Receipt Date: 20121107
  Transmission Date: 20130627
  Serious: No
  Sender: FDA-Public Use
  Company Number: US-AMGEN-USASP2011057054

PATIENT
  Age: 48 Year
  Sex: Female

DRUGS (12)
  1. ENBREL [Suspect]
     Indication: PRODUCT USED FOR UNKNOWN INDICATION
     Dosage: 50 mg, qwk
  2. NUCYNTA [Concomitant]
  3. SYNTHROID [Concomitant]
  4. TOPAMAX [Concomitant]
  5. FENTANYL [Concomitant]
  6. RESTORIL                           /00054301/ [Concomitant]
  7. OMEPRAZOLE [Concomitant]
  8. STOOL SOFTENER [Concomitant]
  9. VITAMIN D /00107901/ [Concomitant]
  10. VITAMIN C                          /00008001/ [Concomitant]
  11. NUVIGIL [Concomitant]
  12. NAPRELAN [Concomitant]

REACTIONS (4)
  - Sneezing [Unknown]
  - Faeces discoloured [Unknown]
  - Diarrhoea [Unknown]
  - Pruritus [Unknown]
